FAERS Safety Report 5518077-9 (Version None)
Quarter: 2007Q4

REPORT INFORMATION
  Report Type: 
  Country: None (occurrence: None)
  Receive Date: 20071115
  Receipt Date: 20071107
  Transmission Date: 20080405
  Serious: Yes (Hospitalization)
  Sender: FDA-Public Use
  Company Number: US-ELI_LILLY_AND_COMPANY-US200707001194

PATIENT
  Sex: Female
  Weight: 50.793 kg

DRUGS (7)
  1. PEMETREXED [Suspect]
     Indication: SMALL CELL LUNG CANCER EXTENSIVE STAGE
     Dosage: 715 MG, OTHER
     Route: 042
     Dates: start: 20070619, end: 20070619
  2. CARBOPLATIN [Suspect]
     Indication: SMALL CELL LUNG CANCER EXTENSIVE STAGE
     Dosage: 5 D/F, OTHER
     Route: 042
     Dates: start: 20070619, end: 20070619
  3. FOLIC ACID [Concomitant]
     Indication: VITAMIN SUPPLEMENTATION
     Dosage: 400 UG, DAILY (1/D)
     Route: 048
     Dates: start: 20070614, end: 20070630
  4. VITAMIN B-12 [Concomitant]
     Indication: VITAMIN SUPPLEMENTATION
     Dosage: 1000 UG, OTHER
     Route: 030
     Dates: start: 20070615, end: 20070615
  5. DEXAMETHASONE [Concomitant]
     Indication: PREMEDICATION
     Dosage: 4 MG, OTHER
     Route: 048
     Dates: start: 20070618, end: 20070620
  6. LORTAB [Concomitant]
     Indication: BACK PAIN
     Dosage: UNK, AS NEEDED
     Dates: start: 20060405
  7. NICOTINE [Concomitant]
     Indication: SMOKING CESSATION THERAPY
     Route: 062
     Dates: start: 20070530

REACTIONS (7)
  - DEHYDRATION [None]
  - ENCEPHALOPATHY [None]
  - FEBRILE NEUTROPENIA [None]
  - LEUKOPENIA [None]
  - PANCYTOPENIA [None]
  - THROMBOCYTOPENIA [None]
  - UNRESPONSIVE TO STIMULI [None]
